FAERS Safety Report 11146308 (Version 4)
Quarter: 2015Q3

REPORT INFORMATION
  Report Type: Spontaneous
  Country: US (occurrence: US)
  Receive Date: 20150528
  Receipt Date: 20150717
  Transmission Date: 20151125
  Serious: Yes (Other)
  Sender: FDA-Public Use
  Company Number: US-PFIZER INC-2015179304

PATIENT
  Age: 89 Year
  Sex: Female
  Weight: 71 kg

DRUGS (21)
  1. PREDNISONE. [Concomitant]
     Active Substance: PREDNISONE
     Dosage: 10 MG, UNK
     Route: 048
     Dates: start: 20150505
  2. FUROSEMIDE. [Concomitant]
     Active Substance: FUROSEMIDE
     Dosage: 40 MG, DAILY
     Route: 048
     Dates: start: 20150515
  3. LYRICA [Suspect]
     Active Substance: PREGABALIN
     Indication: CARDIOMYOPATHY
  4. FLUTICASONE PROPIONATE. [Concomitant]
     Active Substance: FLUTICASONE PROPIONATE
     Indication: SINUS CONGESTION
     Dosage: 1-2 SPRAYS IN EACH NOSTRIL DAILY AS NEEDED
     Route: 045
  5. LYRICA [Suspect]
     Active Substance: PREGABALIN
     Indication: SPINAL COLUMN STENOSIS
  6. FUROSEMIDE. [Concomitant]
     Active Substance: FUROSEMIDE
     Dosage: 20 MG, DAILY
     Route: 048
     Dates: start: 20150320
  7. ATENOLOL. [Concomitant]
     Active Substance: ATENOLOL
     Dosage: 50 MG, 1X/DAY
     Route: 048
  8. LEVOTHYROXINE SODIUM. [Concomitant]
     Active Substance: LEVOTHYROXINE SODIUM
     Dosage: 50 ?G, 1X/DAY
     Route: 048
  9. FUROSEMIDE. [Concomitant]
     Active Substance: FUROSEMIDE
     Dosage: 20 MG, DAILY
     Route: 048
     Dates: start: 20150521
  10. FLUTICASONE PROPIONATE. [Concomitant]
     Active Substance: FLUTICASONE PROPIONATE
     Indication: SEASONAL ALLERGY
  11. ASPIRIN. [Concomitant]
     Active Substance: ASPIRIN
     Dosage: 81 MG, 1X/DAY
     Route: 048
  12. LYRICA [Suspect]
     Active Substance: PREGABALIN
     Indication: SCIATICA
     Dosage: 75 MG, 2X/DAY
     Route: 048
     Dates: start: 20150430, end: 20150508
  13. POTASSIUM [Concomitant]
     Active Substance: POTASSIUM
     Dosage: 10 MEQ, DAILY
     Route: 048
     Dates: start: 20150521
  14. TRAMADOL HCL [Concomitant]
     Active Substance: TRAMADOL HYDROCHLORIDE
     Dosage: 50 MG, 3X/DAY (AS NEEDED)
     Route: 048
  15. LYRICA [Suspect]
     Active Substance: PREGABALIN
     Indication: NEURALGIA
     Dosage: 50 MG, DAILY
     Route: 048
     Dates: start: 201503
  16. PREGABALIN. [Suspect]
     Active Substance: PREGABALIN
     Dosage: UNK
  17. POTASSIUM [Concomitant]
     Active Substance: POTASSIUM
     Dosage: 10 MEQ, DAILY
     Route: 048
  18. POTASSIUM [Concomitant]
     Active Substance: POTASSIUM
     Dosage: 10 MEQ, 2X/DAY
     Route: 048
     Dates: start: 20150505
  19. LISINOPRIL. [Concomitant]
     Active Substance: LISINOPRIL
     Dosage: 10 MG, 1X/DAY
     Route: 048
  20. ZOCOR [Concomitant]
     Active Substance: SIMVASTATIN
     Dosage: 10 MG, 1X/DAY
     Route: 048
  21. MECLIZINE HCL [Concomitant]
     Active Substance: MECLIZINE HYDROCHLORIDE
     Dosage: 25 MG, 3X/DAY (IF NEEDED)
     Route: 048

REACTIONS (33)
  - Balance disorder [Unknown]
  - Cardiac valve disease [Unknown]
  - Peripheral swelling [Recovering/Resolving]
  - Lip swelling [Recovering/Resolving]
  - Feeling abnormal [Unknown]
  - Urine albumin/creatinine ratio increased [Unknown]
  - Foot fracture [Not Recovered/Not Resolved]
  - Microalbuminuria [Unknown]
  - Dizziness [Unknown]
  - Drug hypersensitivity [Unknown]
  - Hypervolaemia [Unknown]
  - Bone swelling [Not Recovered/Not Resolved]
  - Swelling [Not Recovered/Not Resolved]
  - Rash [Not Recovered/Not Resolved]
  - Cheilitis [Unknown]
  - Hypertension [Recovering/Resolving]
  - Condition aggravated [Recovering/Resolving]
  - Lip blister [Not Recovered/Not Resolved]
  - Swelling face [Unknown]
  - Nausea [Unknown]
  - Skin hyperpigmentation [Recovering/Resolving]
  - Vision blurred [Not Recovered/Not Resolved]
  - Depression [Unknown]
  - Confusional state [Unknown]
  - Weight increased [Unknown]
  - Pain [Not Recovered/Not Resolved]
  - Blood urea increased [Unknown]
  - Blood urea nitrogen/creatinine ratio increased [Unknown]
  - Fall [Not Recovered/Not Resolved]
  - Psychotic disorder [Unknown]
  - Feeling drunk [Unknown]
  - Oedema [Unknown]
  - Eyelid oedema [Recovering/Resolving]

NARRATIVE: CASE EVENT DATE: 201504
